FAERS Safety Report 8063186-6 (Version None)
Quarter: 2012Q1

REPORT INFORMATION
  Report Type: 
  Country: None (occurrence: None)
  Receive Date: 20120123
  Receipt Date: 20120112
  Transmission Date: 20120608
  Serious: Yes (Other)
  Sender: FDA-Public Use
  Company Number: PHHY2011FR85544

PATIENT
  Sex: Male
  Weight: 88 kg

DRUGS (7)
  1. SINTROM [Concomitant]
     Indication: ARRHYTHMIA
     Route: 048
     Dates: start: 19800101
  2. ALFUZOSIN HCL [Concomitant]
     Indication: PROSTATIC ADENOMA
     Dosage: 10 MG, QD
     Route: 048
     Dates: start: 20070101
  3. FENOFIBRATE [Concomitant]
     Indication: DYSLIPIDAEMIA
     Dates: start: 19800101
  4. RASILEZ [Suspect]
     Indication: HYPERTENSION
     Dosage: 150 MG, IN TWO INTAKES
     Dates: start: 20110921, end: 20110923
  5. ANGIOTENSIN CONVERTING ENZYME BLOCKERS [Concomitant]
     Dosage: UNK UKN, UNK
  6. MICARDIS HCT [Concomitant]
     Indication: HYPERTENSION
     Dosage: 1 DF, QD
     Dates: start: 20070101
  7. LERCANIDIPINE [Concomitant]
     Indication: HYPERTENSION
     Dosage: 20 MG, QD
     Route: 048
     Dates: start: 20080101

REACTIONS (3)
  - ANAPHYLACTIC REACTION [None]
  - ANGIOEDEMA [None]
  - EYELID OEDEMA [None]
